FAERS Safety Report 19482133 (Version 3)
Quarter: 2021Q3

REPORT INFORMATION
  Report Type: Report from Study
  Country: None (occurrence: CA)
  Receive Date: 20210701
  Receipt Date: 20210929
  Transmission Date: 20211014
  Serious: Yes (Other)
  Sender: FDA-Public Use
  Company Number: CA-ABBVIE-21K-028-3971596-00

PATIENT
  Age: 29 Year
  Sex: Female

DRUGS (7)
  1. SKYRIZI [Suspect]
     Active Substance: RISANKIZUMAB-RZAA
     Indication: PSORIASIS
     Route: 058
     Dates: start: 20201007
  2. VENLAFAXINE [Concomitant]
     Active Substance: VENLAFAXINE HYDROCHLORIDE
     Indication: ANXIETY
     Route: 048
     Dates: start: 20190516
  3. FUCIDIN [Concomitant]
     Active Substance: FUSIDATE SODIUM
     Indication: SKIN ULCER
     Dosage: 1 USE
     Route: 047
     Dates: start: 20210323
  4. MIRENA [Concomitant]
     Active Substance: LEVONORGESTREL
     Indication: CONTRACEPTION
     Dosage: 1 IUD, ONCE
     Route: 015
     Dates: start: 20180827, end: 20210520
  5. BIPHENTIN [Concomitant]
     Active Substance: METHYLPHENIDATE
     Indication: DISTURBANCE IN ATTENTION
     Route: 048
     Dates: start: 20180801
  6. TYLENOL [Concomitant]
     Active Substance: ACETAMINOPHEN
     Indication: NASOPHARYNGITIS
     Dosage: AS NEEDED
     Route: 048
     Dates: start: 20201104, end: 20201114
  7. RAMIPRIL. [Concomitant]
     Active Substance: RAMIPRIL
     Indication: HYPERTENSION
     Route: 048
     Dates: start: 20190205

REACTIONS (1)
  - Polypectomy [Recovered/Resolved]

NARRATIVE: CASE EVENT DATE: 20210520
